FAERS Safety Report 6434586-2 (Version None)
Quarter: 2009Q4

REPORT INFORMATION
  Report Type: 
  Country: None (occurrence: None)
  Receive Date: 20091110
  Receipt Date: 20091102
  Transmission Date: 20100525
  Serious: Yes (Other)
  Sender: FDA-Public Use
  Company Number: A0814474A

PATIENT
  Sex: Male

DRUGS (1)
  1. CEFTIN [Suspect]
     Indication: DRUG USE FOR UNKNOWN INDICATION
     Route: 065

REACTIONS (5)
  - GASTROENTERITIS VIRAL [None]
  - MALAISE [None]
  - PAIN [None]
  - PRODUCT QUALITY ISSUE [None]
  - VOMITING [None]
